FAERS Safety Report 9756667 (Version 3)
Quarter: 2014Q1

REPORT INFORMATION
  Report Type: Spontaneous
  Country: IT (occurrence: IT)
  Receive Date: 20131213
  Receipt Date: 20140208
  Transmission Date: 20141002
  Serious: Yes (Other)
  Sender: FDA-Public Use
  Company Number: IT-ABBVIE-13P-083-1179582-00

PATIENT
  Age: 46 Year
  Sex: Female

DRUGS (5)
  1. DEPAKINE CHRONO [Suspect]
     Indication: INTENTIONAL SELF-INJURY
     Route: 048
     Dates: start: 20131115, end: 20131115
  2. DELORAZEPAM [Suspect]
     Indication: INTENTIONAL SELF-INJURY
     Route: 048
     Dates: start: 20131115, end: 20131115
  3. ABILIFY [Suspect]
     Indication: INTENTIONAL SELF-INJURY
     Route: 048
     Dates: start: 20131115, end: 20131115
  4. AKINETON [Suspect]
     Indication: INTENTIONAL SELF-INJURY
     Route: 048
     Dates: start: 20131115, end: 20131115
  5. INVEGA [Suspect]
     Indication: INTENTIONAL SELF-INJURY
     Route: 048
     Dates: start: 20131115, end: 20131115

REACTIONS (3)
  - Psychomotor retardation [Unknown]
  - Drug abuse [Not Recovered/Not Resolved]
  - Bradyphrenia [Recovering/Resolving]
